FAERS Safety Report 11434532 (Version 1)
Quarter: 2015Q3

REPORT INFORMATION
  Report Type: Spontaneous
  Country: US (occurrence: None)
  Receive Date: 20150828
  Receipt Date: 20150828
  Transmission Date: 20151125
  Serious: No
  Sender: FDA-Public Use
  Company Number: None

PATIENT
  Age: 45 Year
  Sex: Female

DRUGS (1)
  1. CERDELGA [Suspect]
     Active Substance: ELIGLUSTAT
     Indication: ILL-DEFINED DISORDER
     Dosage: 1 CAPSULE (84 MG)  ONCE A DAY  PO
     Route: 048
     Dates: start: 20150527

REACTIONS (1)
  - Nausea [None]

NARRATIVE: CASE EVENT DATE: 20150729
